FAERS Safety Report 21298382 (Version 1)
Quarter: 2022Q3

REPORT INFORMATION
  Report Type: Spontaneous
  Country: PR (occurrence: None)
  Receive Date: 20220902
  Receipt Date: 20220902
  Transmission Date: 20221027
  Serious: Yes (Hospitalization)
  Sender: FDA-Public Use
  Company Number: None

PATIENT
  Age: 58 Year
  Sex: Male

DRUGS (1)
  1. KRYSTEXXA [Suspect]
     Active Substance: PEGLOTICASE
     Indication: Gout
     Dosage: OTHER FREQUENCY : EVERY TWO WEEKS;?
     Route: 041
     Dates: start: 20220828, end: 20220828

REACTIONS (3)
  - Hyperhidrosis [None]
  - Pallor [None]
  - Hypotension [None]

NARRATIVE: CASE EVENT DATE: 20220828
